FAERS Safety Report 21399548 (Version 1)
Quarter: 2022Q4

REPORT INFORMATION
  Report Type: Spontaneous
  Country: FR (occurrence: FR)
  Receive Date: 20221001
  Receipt Date: 20221001
  Transmission Date: 20230113
  Serious: Yes (Death, Congenital Anomaly, Other)
  Sender: FDA-Public Use
  Company Number: None

PATIENT
  Age: 3 Day
  Sex: Female

DRUGS (15)
  1. SPIRONOLACTONE [Suspect]
     Active Substance: SPIRONOLACTONE
     Indication: Product used for unknown indication
     Dosage: THERAPY START DATE : NASK
     Route: 065
     Dates: end: 20150220
  2. EZETIMIBE\SIMVASTATIN [Suspect]
     Active Substance: EZETIMIBE\SIMVASTATIN
     Indication: Product used for unknown indication
     Dosage: THERAPY START DATE : NASK
     Dates: end: 20150220
  3. IRBESARTAN [Suspect]
     Active Substance: IRBESARTAN
     Indication: Product used for unknown indication
     Dosage: THERAPY START DATE : NASK
     Dates: end: 20150220
  4. CHOLECALCIFEROL [Suspect]
     Active Substance: CHOLECALCIFEROL
     Indication: Product used for unknown indication
     Dosage: 20000 IU, MONTHLY (QM) 666.6667 IU , FROM: 3RD TRIMESTER OF PREGNANCY , UNIT DOSE : 20000 IU , FREQU
     Dates: end: 20150818
  5. PROBIOTICS NOS [Suspect]
     Active Substance: PROBIOTICS NOS
     Indication: Product used for unknown indication
     Dosage: UNIT DOSE : 20000 IU , FREQUENCY TIME : 1 MONTH , THERAPY START DATE : NASK
     Dates: end: 20150818
  6. PRIMPERAN [Suspect]
     Active Substance: METOCLOPRAMIDE HYDROCHLORIDE
     Indication: Product used for unknown indication
     Dosage: 30 MILLIGRAM DAILY; 10 MG, 3X/DAY (TID)  STRENGTH:30 MG ,UNIT DOSE : 30 MG , FREQUENCY TIME : 1 DAY
     Dates: start: 20150220, end: 20150818
  7. ATARAX [Suspect]
     Active Substance: HYDROXYZINE HYDROCHLORIDE
     Indication: Product used for unknown indication
     Dosage: 25 MILLIGRAM DAILY; 25 MG, ONCE DAILY (QD)  ,FORM STRENGTH :  25 MG , DURATION ; 180 DAYS
     Dates: start: 20150220, end: 20150818
  8. NEORAL [Suspect]
     Active Substance: CYCLOSPORINE
     Indication: Glomerulonephritis membranous
     Dosage: 400 MILLIGRAM DAILY; 200 MG, 2X/DAY (BID) , UNIT DOSE : 400 MG , FREQUENCY TIME : 1 DAY , DURATION :
     Dates: start: 20150220, end: 20150818
  9. INSULIN NOS [Suspect]
     Active Substance: INSULIN NOS
     Indication: Product used for unknown indication
     Dosage: DURATION : 180 DAYS
     Dates: start: 20150220, end: 20150818
  10. SPIRAMYCIN [Suspect]
     Active Substance: SPIRAMYCIN
     Indication: Product used for unknown indication
     Dosage: DURATION : 179 DAYS
     Dates: start: 20150220, end: 20150818
  11. RAMIPRIL [Suspect]
     Active Substance: RAMIPRIL
     Indication: Product used for unknown indication
     Dosage: THERAPY START DATE : NASK
     Dates: end: 20150220
  12. FERROUS SULFATE\FOLIC ACID\GASTRIC MUCIN [Suspect]
     Active Substance: FERROUS SULFATE\FOLIC ACID\GASTRIC MUCIN
     Indication: Product used for unknown indication
     Dosage: UNIT DOSE : 2 DF , FREQUENCY TIME : 1 DAY , THERAPY START DATE : NASK
     Dates: end: 20150818
  13. SODIUM BICARBONATE [Suspect]
     Active Substance: SODIUM BICARBONATE
     Indication: Product used for unknown indication
     Dosage: 2 GRAM DAILY; 1 G, 2X/DAY (BID) , BICARBONATE DE SODIUM , UNIT DOSE : 1 GRAM  , FREQUENCY TIME : 1 D
     Dates: start: 20150220, end: 20150818
  14. ASPIRIN DL-LYSINE [Suspect]
     Active Substance: ASPIRIN DL-LYSINE
     Indication: Product used for unknown indication
     Dosage: 100 MILLIGRAM DAILY; 100 MG, ONCE DAILY (QD) , THERAPY START DATE : NASK
     Dates: end: 20150818
  15. PROZAC [Suspect]
     Active Substance: FLUOXETINE HYDROCHLORIDE
     Indication: Product used for unknown indication
     Dosage: 20 MILLIGRAM DAILY; 20 MG, ONCE DAILY (QD) , DURATION : 180 DAYS
     Dates: start: 20150220, end: 20150818

REACTIONS (6)
  - Disseminated intravascular coagulation [Fatal]
  - Multiple organ dysfunction syndrome [Fatal]
  - Talipes [Not Recovered/Not Resolved]
  - Congenital musculoskeletal disorder [Not Recovered/Not Resolved]
  - Dysmorphism [Not Recovered/Not Resolved]
  - Low birth weight baby [Unknown]

NARRATIVE: CASE EVENT DATE: 20150820
